FAERS Safety Report 24038820 (Version 1)
Quarter: 2024Q3

REPORT INFORMATION
  Report Type: Spontaneous
  Country: US (occurrence: US)
  Receive Date: 20240702
  Receipt Date: 20240702
  Transmission Date: 20241016
  Serious: No
  Sender: GLAXOSMITHKLINE
  Company Number: US-GSKCCFUS-Case-02040423_AE-113101

PATIENT
  Age: 45 Year
  Sex: Female

DRUGS (1)
  1. NUCALA [Suspect]
     Active Substance: MEPOLIZUMAB
     Indication: Product used for unknown indication
     Dosage: UNK

REACTIONS (4)
  - Gingival blister [Recovered/Resolved]
  - Lip blister [Recovered/Resolved]
  - Oral herpes [Not Recovered/Not Resolved]
  - Lip scab [Unknown]

NARRATIVE: CASE EVENT DATE: 20240516
